FAERS Safety Report 5102429-5 (Version None)
Quarter: 2006Q3

REPORT INFORMATION
  Report Type: 
  Country: None (occurrence: None)
  Receive Date: 20060731
  Receipt Date: 20060524
  Transmission Date: 20061208
  Serious: No
  Sender: FDA-Public Use
  Company Number: 2006PV014449

PATIENT
  Age: 63 Year
  Sex: Male
  Weight: 108.8633 kg

DRUGS (3)
  1. BYETTA [Suspect]
     Indication: DIABETES MELLITUS NON-INSULIN-DEPENDENT
     Dosage: SEE IMAGE
     Route: 058
     Dates: start: 20060517, end: 20060501
  2. BYETTA [Suspect]
     Indication: DIABETES MELLITUS NON-INSULIN-DEPENDENT
     Dosage: SEE IMAGE
     Route: 058
     Dates: start: 20060412, end: 20060516
  3. ACTOS [Concomitant]

REACTIONS (9)
  - COUGH [None]
  - DRUG INEFFECTIVE [None]
  - DYSPNOEA [None]
  - ENERGY INCREASED [None]
  - FATIGUE [None]
  - INCREASED UPPER AIRWAY SECRETION [None]
  - THROAT IRRITATION [None]
  - TREATMENT NONCOMPLIANCE [None]
  - WEIGHT DECREASED [None]
